FAERS Safety Report 4971036-7 (Version None)
Quarter: 2006Q2

REPORT INFORMATION
  Report Type: 
  Country: None (occurrence: None)
  Receive Date: 20060412
  Receipt Date: 20060406
  Transmission Date: 20061013
  Serious: Yes (Hospitalization)
  Sender: FDA-Public Use
  Company Number: US-JNJFOC-20060401329

PATIENT
  Sex: Female

DRUGS (6)
  1. TYLENOL (CAPLET) [Suspect]
     Route: 048
  2. TYLENOL (CAPLET) [Suspect]
     Route: 048
  3. DIMETAPP [Concomitant]
  4. DIMETAPP [Concomitant]
  5. DIMETAPP [Concomitant]
  6. BLOOD PRESSURE MEDICATION [Concomitant]
     Indication: BLOOD PRESSURE INCREASED

REACTIONS (11)
  - BURNING SENSATION [None]
  - CHEST PAIN [None]
  - CONCUSSION [None]
  - DIZZINESS [None]
  - ERYTHEMA [None]
  - FALL [None]
  - FEELING HOT [None]
  - LOSS OF CONSCIOUSNESS [None]
  - PERIPHERAL COLDNESS [None]
  - PRURITUS [None]
  - SENSORY DISTURBANCE [None]
